FAERS Safety Report 8318608-X (Version None)
Quarter: 2012Q2

REPORT INFORMATION
  Report Type: 
  Country: None (occurrence: None)
  Receive Date: 20120427
  Receipt Date: 20090810
  Transmission Date: 20120825
  Serious: No
  Sender: FDA-Public Use
  Company Number: US-TEVA-2009009405

PATIENT
  Sex: Female

DRUGS (1)
  1. NUVIGIL [Suspect]
     Indication: CEREBROVASCULAR ACCIDENT
     Dosage: 150 MILLIGRAM;
     Route: 048

REACTIONS (3)
  - FATIGUE [None]
  - ASTHENOPIA [None]
  - OFF LABEL USE [None]
